FAERS Safety Report 19483597 (Version 1)
Quarter: 2021Q3

REPORT INFORMATION
  Report Type: Spontaneous
  Country: GB (occurrence: GB)
  Receive Date: 20210701
  Receipt Date: 20210701
  Transmission Date: 20211014
  Serious: Yes (Life-Threatening)
  Sender: FDA-Public Use
  Company Number: GB-FERRINGPH-2021FE04212

PATIENT
  Age: 49 Year
  Sex: Female
  Weight: 60.32 kg

DRUGS (2)
  1. ESTROGEN [Suspect]
     Active Substance: ESTROGENS
     Indication: PRODUCT USED FOR UNKNOWN INDICATION
     Dosage: TWO SQUIRTS
     Route: 048
     Dates: start: 20210525, end: 20210623
  2. PROGESTERONE. [Suspect]
     Active Substance: PROGESTERONE
     Indication: HORMONE REPLACEMENT THERAPY
     Dosage: DAILY TWO TABLETS FOR TWO WERKS
     Route: 048
     Dates: start: 20210525, end: 20210623

REACTIONS (6)
  - Product use in unapproved indication [Recovered/Resolved]
  - Intentional self-injury [Recovering/Resolving]
  - Depression [Recovering/Resolving]
  - Product use issue [Recovered/Resolved]
  - Suicidal ideation [Recovering/Resolving]
  - Anxiety [Recovering/Resolving]

NARRATIVE: CASE EVENT DATE: 20210525
